FAERS Safety Report 15155276 (Version 3)
Quarter: 2018Q3

REPORT INFORMATION
  Report Type: Spontaneous
  Country: JP (occurrence: JP)
  Receive Date: 20180717
  Receipt Date: 20180717
  Transmission Date: 20181010
  Serious: Yes (Other)
  Sender: FDA-Public Use
  Company Number: PHHY2018JP039605

PATIENT
  Age: 50 Year
  Sex: Male

DRUGS (2)
  1. PREDNISOLONE. [Suspect]
     Active Substance: PREDNISOLONE
     Indication: VOGT-KOYANAGI-HARADA SYNDROME
     Dosage: 30 MG, QD
     Route: 048
  2. METHYLPREDNISOLONE. [Suspect]
     Active Substance: METHYLPREDNISOLONE
     Indication: VOGT-KOYANAGI-HARADA SYNDROME
     Dosage: 1000 MG, QD (FOR THREE DAYS)
     Route: 042

REACTIONS (3)
  - Subretinal fluid [Recovered/Resolved]
  - Chorioretinopathy [Recovered/Resolved]
  - Papilloedema [Not Recovered/Not Resolved]
